FAERS Safety Report 21206570 (Version 2)
Quarter: 2022Q3

REPORT INFORMATION
  Report Type: Spontaneous
  Country: US (occurrence: US)
  Receive Date: 20220812
  Receipt Date: 20220902
  Transmission Date: 20221027
  Serious: Yes (Other)
  Sender: FDA-Public Use
  Company Number: US-TAKEDA-2022TUS055147

PATIENT
  Age: 31 Year
  Sex: Female
  Weight: 77.098 kg

DRUGS (5)
  1. ADDERALL XR [Suspect]
     Active Substance: AMPHETAMINE ASPARTATE\AMPHETAMINE SULFATE\DEXTROAMPHETAMINE SACCHARATE\DEXTROAMPHETAMINE SULFATE
     Indication: Product used for unknown indication
     Dosage: 30 MILLIGRAM
     Route: 065
  2. CAPLYTA [Suspect]
     Active Substance: LUMATEPERONE
     Indication: Bipolar disorder
     Dosage: 42 MILLIGRAM, QD
     Route: 048
     Dates: start: 202206, end: 2022
  3. CAPLYTA [Suspect]
     Active Substance: LUMATEPERONE
     Dosage: 42 MILLIGRAM, QD
     Route: 065
     Dates: start: 20220711, end: 202208
  4. CANNABIS SATIVA SUBSP. INDICA TOP [Suspect]
     Active Substance: CANNABIS SATIVA SUBSP. INDICA TOP
     Indication: Product used for unknown indication
     Dosage: UNK
     Route: 065
  5. HEATHER [Concomitant]
     Active Substance: NORETHINDRONE
     Indication: Contraception
     Route: 065

REACTIONS (5)
  - Haematemesis [Recovered/Resolved]
  - Metabolic disorder [Recovered/Resolved]
  - Dizziness [Recovered/Resolved]
  - Drug screen positive [Unknown]
  - Therapy interrupted [Unknown]

NARRATIVE: CASE EVENT DATE: 20220701
